FAERS Safety Report 8923389 (Version 1)
Quarter: 2012Q4

REPORT INFORMATION
  Report Type: 
  Country: JM (occurrence: JM)
  Receive Date: 20121124
  Receipt Date: 20121124
  Transmission Date: 20130627
  Serious: Yes (Death, Other)
  Sender: FDA-Public Use
  Company Number: PHHY2012JM105449

PATIENT
  Sex: Female

DRUGS (4)
  1. GLIVEC [Suspect]
     Indication: CHRONIC MYELOID LEUKAEMIA
     Dosage: 600 mg, UNK
     Dates: start: 201208
  2. GLIVEC [Suspect]
     Dosage: 800 mg, UNK
     Dates: start: 201211
  3. METFORMIN [Concomitant]
  4. ALLOPURINOL [Concomitant]

REACTIONS (5)
  - Blast crisis in myelogenous leukaemia [Fatal]
  - Thrombocytopenia [Fatal]
  - Haemorrhage [Fatal]
  - Chronic myeloid leukaemia [Unknown]
  - Malignant neoplasm progression [Unknown]
